FAERS Safety Report 22812096 (Version 5)
Quarter: 2024Q3

REPORT INFORMATION
  Report Type: Spontaneous
  Country: JP (occurrence: JP)
  Receive Date: 20230811
  Receipt Date: 20240716
  Transmission Date: 20241017
  Serious: Yes (Hospitalization)
  Sender: AMGEN
  Company Number: JP-KYOWAKIRIN-2023AKK010976

PATIENT
  Age: 49 Year
  Sex: Female

DRUGS (68)
  1. PEGFILGRASTIM [Suspect]
     Active Substance: PEGFILGRASTIM
     Indication: Colony stimulating factor therapy
     Dosage: 3.6 MG
     Route: 058
     Dates: start: 20230406
  2. PEGFILGRASTIM [Suspect]
     Active Substance: PEGFILGRASTIM
     Dosage: 3.6 MG
     Route: 058
     Dates: start: 20230426
  3. PEGFILGRASTIM [Suspect]
     Active Substance: PEGFILGRASTIM
     Dosage: 3.6 MG
     Route: 058
     Dates: start: 20230517
  4. PEGFILGRASTIM [Suspect]
     Active Substance: PEGFILGRASTIM
     Dosage: 3.6 MG
     Route: 058
     Dates: start: 20230607
  5. PEGFILGRASTIM [Suspect]
     Active Substance: PEGFILGRASTIM
     Dosage: 3.6 MG
     Route: 058
     Dates: start: 20230628
  6. ADRIACIN [Concomitant]
     Active Substance: DOXORUBICIN HYDROCHLORIDE
     Indication: Breast cancer
     Dosage: 2 DF
     Route: 041
     Dates: start: 20230404
  7. ADRIACIN [Concomitant]
     Active Substance: DOXORUBICIN HYDROCHLORIDE
     Dosage: 2 DF
     Route: 041
     Dates: start: 20230425
  8. ADRIACIN [Concomitant]
     Active Substance: DOXORUBICIN HYDROCHLORIDE
     Dosage: 2 DF
     Route: 041
     Dates: start: 20230516
  9. ADRIACIN [Concomitant]
     Active Substance: DOXORUBICIN HYDROCHLORIDE
     Dosage: 2 DF
     Route: 041
     Dates: start: 20230606
  10. CYCLOPHOSPHAMIDE [Concomitant]
     Active Substance: CYCLOPHOSPHAMIDE
     Indication: Breast cancer
     Dosage: 2 DF
     Route: 041
     Dates: start: 20230404
  11. CYCLOPHOSPHAMIDE [Concomitant]
     Active Substance: CYCLOPHOSPHAMIDE
     Dosage: 2 DF
     Route: 041
     Dates: start: 20230425
  12. CYCLOPHOSPHAMIDE [Concomitant]
     Active Substance: CYCLOPHOSPHAMIDE
     Dosage: 2 DF
     Route: 041
     Dates: start: 20230516
  13. CYCLOPHOSPHAMIDE [Concomitant]
     Active Substance: CYCLOPHOSPHAMIDE
     Dosage: 2 DF
     Route: 041
     Dates: start: 20230606
  14. DOCETAXEL [Concomitant]
     Active Substance: DOCETAXEL\DOCETAXEL ANHYDROUS
     Indication: Breast cancer
     Dosage: 1 DF
     Route: 041
     Dates: start: 20230627
  15. DOCETAXEL [Concomitant]
     Active Substance: DOCETAXEL\DOCETAXEL ANHYDROUS
     Dosage: 2 DF
     Route: 041
     Dates: start: 20230627
  16. AZELNIDIPINE\OLMESARTAN MEDOXOMIL [Concomitant]
     Active Substance: AZELNIDIPINE\OLMESARTAN MEDOXOMIL
     Indication: Hypertension
     Dosage: 1 DF, QD
     Route: 048
     Dates: start: 202212
  17. D CHLORPHENIRAMINE MALEATE TAKEDA TEVA [Concomitant]
     Indication: Product used for unknown indication
     Dosage: 1 DF
     Route: 065
     Dates: start: 20230425
  18. D CHLORPHENIRAMINE MALEATE TAKEDA TEVA [Concomitant]
     Dosage: 1 DF
     Route: 065
     Dates: start: 20230516
  19. D CHLORPHENIRAMINE MALEATE TAKEDA TEVA [Concomitant]
     Dosage: 1 DF
     Route: 065
     Dates: start: 20230606
  20. PRIMPERAN [Concomitant]
     Active Substance: METOCLOPRAMIDE HYDROCHLORIDE
     Indication: Product used for unknown indication
     Dosage: 1 DF, TID, AFTER MEAL
     Route: 065
     Dates: start: 20230405, end: 20230406
  21. PRIMPERAN [Concomitant]
     Active Substance: METOCLOPRAMIDE HYDROCHLORIDE
     Dosage: 1 DF, TID
     Route: 065
     Dates: start: 20230425, end: 20230426
  22. PRIMPERAN [Concomitant]
     Active Substance: METOCLOPRAMIDE HYDROCHLORIDE
     Dosage: 1 DF, TID
     Route: 065
     Dates: start: 20230516, end: 20230517
  23. PRIMPERAN [Concomitant]
     Active Substance: METOCLOPRAMIDE HYDROCHLORIDE
     Dosage: 1 DF, TID
     Route: 065
     Dates: start: 20230606, end: 20230607
  24. PRIMPERAN [Concomitant]
     Active Substance: METOCLOPRAMIDE HYDROCHLORIDE
     Dosage: 1 DF, TID
     Route: 065
     Dates: start: 20230628
  25. DECADRON [Concomitant]
     Active Substance: DEXAMETHASONE
     Indication: Product used for unknown indication
     Dosage: 2 DF, QD
     Route: 048
     Dates: start: 20230405, end: 20230407
  26. DECADRON [Concomitant]
     Active Substance: DEXAMETHASONE
     Dosage: 2 DF, QD
     Route: 048
     Dates: start: 20230426, end: 20230428
  27. DECADRON [Concomitant]
     Active Substance: DEXAMETHASONE
     Dosage: 2 DF, QD
     Route: 048
     Dates: start: 20230517, end: 20230519
  28. DECADRON [Concomitant]
     Active Substance: DEXAMETHASONE
     Dosage: 2 DF, QD
     Route: 048
     Dates: start: 20230607, end: 20230609
  29. DECADRON [Concomitant]
     Active Substance: DEXAMETHASONE
     Dosage: 2 DF, QD, AFTER BREAKFAST AND DINNER
     Route: 048
     Dates: start: 20230628, end: 20230629
  30. DECADRON [Concomitant]
     Active Substance: DEXAMETHASONE
     Dosage: 1 DF
     Route: 065
     Dates: start: 20230404
  31. DECADRON [Concomitant]
     Active Substance: DEXAMETHASONE
     Dosage: 1 DF
     Route: 065
     Dates: start: 20230425
  32. DECADRON [Concomitant]
     Active Substance: DEXAMETHASONE
     Dosage: 1 DF
     Dates: start: 20230516
  33. DECADRON [Concomitant]
     Active Substance: DEXAMETHASONE
     Dosage: 1 DF
     Route: 065
     Dates: start: 20230606
  34. DECADRON [Concomitant]
     Active Substance: DEXAMETHASONE
     Dosage: 1 DF
     Route: 065
     Dates: start: 20230627
  35. MAGNESIUM OXIDE [Concomitant]
     Active Substance: MAGNESIUM OXIDE
     Indication: Product used for unknown indication
     Dosage: 2 DF, TID, AFTER MEAL
     Route: 065
     Dates: start: 20230405, end: 20230406
  36. MAGNESIUM OXIDE [Concomitant]
     Active Substance: MAGNESIUM OXIDE
     Dosage: 2 DF, TID, AFTER MEAL
     Route: 065
     Dates: start: 20230426
  37. MAGNESIUM OXIDE [Concomitant]
     Active Substance: MAGNESIUM OXIDE
     Dosage: 2 DF, TID, AFTER MEAL
     Route: 065
     Dates: start: 20230517
  38. MAGNESIUM OXIDE [Concomitant]
     Active Substance: MAGNESIUM OXIDE
     Dosage: 2 DF, TID, AFTER MEAL
     Route: 065
     Dates: start: 20230607
  39. MAGNESIUM OXIDE [Concomitant]
     Active Substance: MAGNESIUM OXIDE
     Dosage: 2 DF, TID, AFTER MEAL
     Route: 065
     Dates: start: 20230628
  40. HEPARINOID [Concomitant]
     Indication: Product used for unknown indication
     Dosage: 50 G
     Route: 065
     Dates: start: 20230426
  41. HEPARINOID [Concomitant]
     Dosage: 100 G
     Route: 065
     Dates: start: 20230607
  42. HEPARINOID [Concomitant]
     Dosage: 100 G
     Route: 065
     Dates: start: 20230628
  43. Loxonin flex [Concomitant]
     Indication: Pain
     Dosage: 1 DF
     Route: 048
     Dates: start: 20230404, end: 20230426
  44. Loxonin flex [Concomitant]
     Dosage: 1 DF, TID, AFTER MEAL
     Route: 048
     Dates: start: 20230406
  45. Loxonin flex [Concomitant]
     Dosage: 1 DF, TID, AFTER MEAL
     Route: 048
     Dates: start: 20230425, end: 20230426
  46. Loxonin flex [Concomitant]
     Dosage: 1 DF, TID, AFTER MEAL
     Route: 048
     Dates: start: 20230628
  47. REBAMIPIDE [Concomitant]
     Active Substance: REBAMIPIDE
     Indication: Pain
     Dosage: 1 DF
     Route: 048
     Dates: start: 20230404
  48. REBAMIPIDE [Concomitant]
     Active Substance: REBAMIPIDE
     Dosage: 1 DF, TID, AFTER MEAL
     Route: 048
     Dates: start: 20230406
  49. REBAMIPIDE [Concomitant]
     Active Substance: REBAMIPIDE
     Dosage: 1 DF, TID, AFTER MEAL
     Route: 048
     Dates: start: 20230425, end: 20230426
  50. REBAMIPIDE [Concomitant]
     Active Substance: REBAMIPIDE
     Dosage: 1 DF, TID, AFTER MEAL
     Route: 048
     Dates: start: 20230628
  51. BIO-THREE [Concomitant]
     Active Substance: HERBALS
     Indication: Product used for unknown indication
     Dosage: 2 DF, TID, AFTER MEAL
     Route: 048
     Dates: start: 20230628
  52. PALONOSETRON [Concomitant]
     Active Substance: PALONOSETRON
     Indication: Product used for unknown indication
     Dosage: 1 DF
     Route: 041
     Dates: start: 20230404
  53. PALONOSETRON [Concomitant]
     Active Substance: PALONOSETRON
     Dosage: 1 DF
     Route: 041
     Dates: start: 20230425
  54. PALONOSETRON [Concomitant]
     Active Substance: PALONOSETRON
     Dosage: 1 DF
     Route: 041
     Dates: start: 20230516
  55. PALONOSETRON [Concomitant]
     Active Substance: PALONOSETRON
     Dosage: 1 DF
     Route: 041
     Dates: start: 20230606
  56. ISOTONIC SODIUM CHLORIDE SOLUTION [Concomitant]
     Active Substance: SODIUM CHLORIDE
     Indication: Product used for unknown indication
     Dosage: UNK
     Route: 041
     Dates: start: 20230404
  57. ISOTONIC SODIUM CHLORIDE SOLUTION [Concomitant]
     Active Substance: SODIUM CHLORIDE
     Dosage: UNK
     Route: 041
     Dates: start: 20230425
  58. ISOTONIC SODIUM CHLORIDE SOLUTION [Concomitant]
     Active Substance: SODIUM CHLORIDE
     Dosage: UNK
     Route: 041
     Dates: start: 20230516
  59. ISOTONIC SODIUM CHLORIDE SOLUTION [Concomitant]
     Active Substance: SODIUM CHLORIDE
     Dosage: UNK
     Route: 041
     Dates: start: 20230606
  60. ISOTONIC SODIUM CHLORIDE SOLUTION [Concomitant]
     Active Substance: SODIUM CHLORIDE
     Dosage: UNK
     Route: 041
     Dates: start: 20230627
  61. FOSNETUPITANT CHLORIDE HYDROCHLORIDE [Concomitant]
     Active Substance: FOSNETUPITANT CHLORIDE HYDROCHLORIDE
     Indication: Product used for unknown indication
     Dosage: 1 DF
     Route: 041
     Dates: start: 20230404
  62. FOSNETUPITANT CHLORIDE HYDROCHLORIDE [Concomitant]
     Active Substance: FOSNETUPITANT CHLORIDE HYDROCHLORIDE
     Dosage: 1 DF
     Route: 041
     Dates: start: 20230425
  63. FOSNETUPITANT CHLORIDE HYDROCHLORIDE [Concomitant]
     Active Substance: FOSNETUPITANT CHLORIDE HYDROCHLORIDE
     Dosage: 1 DF
     Route: 041
     Dates: start: 20230516
  64. FOSNETUPITANT CHLORIDE HYDROCHLORIDE [Concomitant]
     Active Substance: FOSNETUPITANT CHLORIDE HYDROCHLORIDE
     Dosage: 1 DF
     Route: 041
     Dates: start: 20230606
  65. GLYCOSAMINOGLYCANS [Concomitant]
     Active Substance: GLYCOSAMINOGLYCANS
     Indication: Product used for unknown indication
     Dosage: 50 G
     Route: 065
     Dates: start: 20230406
  66. GLYCOSAMINOGLYCANS [Concomitant]
     Active Substance: GLYCOSAMINOGLYCANS
     Dosage: 50 G
     Route: 065
     Dates: start: 20230426
  67. Hachiazule [Concomitant]
     Indication: Product used for unknown indication
     Dosage: 42 G
     Route: 049
     Dates: start: 20230406
  68. OLANZAPINE [Concomitant]
     Active Substance: OLANZAPINE
     Indication: Product used for unknown indication
     Dosage: 0.5 DF
     Route: 065
     Dates: start: 20230406

REACTIONS (2)
  - Vasculitis [Recovered/Resolved]
  - Pleurisy [Recovered/Resolved]

NARRATIVE: CASE EVENT DATE: 20230702
